FAERS Safety Report 8229914-1 (Version None)
Quarter: 2012Q1

REPORT INFORMATION
  Report Type: 
  Country: None (occurrence: None)
  Receive Date: 20120323
  Receipt Date: 20120312
  Transmission Date: 20120608
  Serious: No
  Sender: FDA-Public Use
  Company Number: US-BIOGENIDEC-2011BI018327

PATIENT
  Age: 37 Year
  Sex: Female

DRUGS (4)
  1. AVONEX [Concomitant]
     Route: 030
     Dates: start: 20050201
  2. TYSABRI [Suspect]
     Indication: MULTIPLE SCLEROSIS
     Route: 042
     Dates: start: 20100303
  3. AVONEX [Concomitant]
     Indication: MULTIPLE SCLEROSIS
     Route: 030
  4. AVONEX [Concomitant]
     Route: 030
     Dates: start: 20060428, end: 20091201

REACTIONS (18)
  - CENTRAL VENOUS CATHETERISATION [None]
  - HYPOAESTHESIA [None]
  - FATIGUE [None]
  - OBSESSIVE-COMPULSIVE DISORDER [None]
  - DEPRESSION [None]
  - POOR VENOUS ACCESS [None]
  - VIRAL INFECTION [None]
  - DIZZINESS [None]
  - NAUSEA [None]
  - WEIGHT DECREASED [None]
  - VEIN DISORDER [None]
  - ALTERED VISUAL DEPTH PERCEPTION [None]
  - MULTIPLE SCLEROSIS RELAPSE [None]
  - DECREASED APPETITE [None]
  - STRESS [None]
  - COGNITIVE DISORDER [None]
  - BLADDER DISORDER [None]
  - APHASIA [None]
